FAERS Safety Report 17334349 (Version 1)
Quarter: 2020Q1

REPORT INFORMATION
  Report Type: Spontaneous
  Country: JP (occurrence: JP)
  Receive Date: 20200128
  Receipt Date: 20200128
  Transmission Date: 20200409
  Serious: Yes (Other)
  Sender: FDA-Public Use
  Company Number: JP-PFIZER INC-2020031373

PATIENT
  Age: 36 Year
  Sex: Female

DRUGS (1)
  1. CABASER [Suspect]
     Active Substance: CABERGOLINE
     Dosage: UNK
     Dates: end: 20200104

REACTIONS (1)
  - Ventricular tachycardia [Unknown]
